FAERS Safety Report 12670817 (Version 1)
Quarter: 2016Q3

REPORT INFORMATION
  Report Type: Spontaneous
  Country: US (occurrence: None)
  Receive Date: 20160819
  Receipt Date: 20160819
  Transmission Date: 20161109
  Serious: Yes (Life-Threatening, Hospitalization)
  Sender: FDA-Public Use
  Company Number: None

PATIENT
  Age: 58 Year
  Sex: Female
  Weight: 60.33 kg

DRUGS (7)
  1. ENBREL [Suspect]
     Active Substance: ETANERCEPT
     Indication: RHEUMATOID ARTHRITIS
     Dosage: 50/MG/ML 1 ONCE A WEEK INJECTION
     Dates: end: 20160615
  2. FLUCONAZOLE. [Concomitant]
     Active Substance: FLUCONAZOLE
  3. VALACVCLOVIR HCL [Concomitant]
  4. DRONABINOL. [Concomitant]
     Active Substance: DRONABINOL
  5. TYLENOL [Concomitant]
     Active Substance: ACETAMINOPHEN
  6. LETALOLOL HCL [Concomitant]
  7. LEVOFLOXACIN. [Concomitant]
     Active Substance: LEVOFLOXACIN

REACTIONS (3)
  - Sinusitis [None]
  - Leukaemia [None]
  - Haemorrhage [None]

NARRATIVE: CASE EVENT DATE: 20160612
